FAERS Safety Report 4719894-5 (Version None)
Quarter: 2005Q3

REPORT INFORMATION
  Report Type: 
  Country: None (occurrence: None)
  Receive Date: 20050721
  Receipt Date: 20050110
  Transmission Date: 20060218
  Serious: No
  Sender: FDA-Public Use
  Company Number: US-GLAXOSMITHKLINE-A0540038A

PATIENT
  Age: 64 Year
  Sex: Female

DRUGS (10)
  1. AVANDIA [Suspect]
     Dosage: 4MG PER DAY
     Route: 048
     Dates: start: 20041204
  2. LIPITOR [Concomitant]
  3. FOSAMAX [Concomitant]
  4. TOPROL-XL [Concomitant]
  5. OMEPRAZOLE [Concomitant]
  6. ASPIRIN [Concomitant]
  7. ASCORBIC ACID [Concomitant]
  8. MULTI-VITAMIN [Concomitant]
  9. VITAMIN D [Concomitant]
  10. CALCIUM GLUCONATE [Concomitant]

REACTIONS (1)
  - BLOOD CHOLESTEROL INCREASED [None]
